FAERS Safety Report 8910081 (Version 1)
Quarter: 2012Q4

REPORT INFORMATION
  Report Type: Report from Study
  Country: GR (occurrence: GR)
  Receive Date: 20121114
  Receipt Date: 20121114
  Transmission Date: 20130627
  Serious: Yes (Death, Life-Threatening, Hospitalization)
  Sender: FDA-Public Use
  Company Number: GR-ACTELION-A-CH2012-73939

PATIENT
  Age: 71 Year
  Sex: Female
  Weight: 94 kg

DRUGS (7)
  1. TRACLEER [Suspect]
     Indication: DIGITAL ULCER
     Dosage: 62.5 mg, bid
     Route: 048
     Dates: start: 20101207, end: 20120120
  2. LANSOPRAZOLE [Concomitant]
  3. CLOPIDOGREL [Concomitant]
  4. FUROSEMIDE [Concomitant]
  5. METHYLPREDNISOLONE [Concomitant]
  6. CARVEDILOL [Concomitant]
  7. VENLAFAXINE [Concomitant]

REACTIONS (12)
  - Cardiac failure [Fatal]
  - Cardiac arrest [Fatal]
  - Acute myocardial infarction [Recovered/Resolved]
  - Liver function test abnormal [Not Recovered/Not Resolved]
  - Alanine aminotransferase increased [Not Recovered/Not Resolved]
  - Aspartate aminotransferase increased [Not Recovered/Not Resolved]
  - Blood alkaline phosphatase increased [Not Recovered/Not Resolved]
  - Blood bilirubin abnormal [Not Recovered/Not Resolved]
  - Hypotension [Recovered/Resolved]
  - Oedema peripheral [Recovered/Resolved]
  - No therapeutic response [None]
  - Blood bilirubin increased [None]
